FAERS Safety Report 24593282 (Version 2)
Quarter: 2024Q4

REPORT INFORMATION
  Report Type: Spontaneous
  Country: RU (occurrence: RU)
  Receive Date: 20241108
  Receipt Date: 20241115
  Transmission Date: 20250114
  Serious: Yes (Other)
  Sender: MIRUM PHARMACEUTICALS
  Company Number: RU-MIRUM PHARMACEUTICALS INTERNATIONAL B.V.-RU-MIR-24-00975

PATIENT

DRUGS (1)
  1. LIVMARLI [Suspect]
     Active Substance: MARALIXIBAT CHLORIDE
     Indication: Alagille syndrome
     Dosage: UNK
     Route: 048
     Dates: start: 202405

REACTIONS (1)
  - Haematochezia [Not Recovered/Not Resolved]

NARRATIVE: CASE EVENT DATE: 20240101
